FAERS Safety Report 18745413 (Version 1)
Quarter: 2021Q1

REPORT INFORMATION
  Report Type: Report from Study
  Country: None (occurrence: US)
  Receive Date: 20210115
  Receipt Date: 20210115
  Transmission Date: 20210419
  Serious: Yes (Hospitalization)
  Sender: FDA-Public Use
  Company Number: US-ABBVIE-20K-163-3668798-00

PATIENT
  Age: 79 Year
  Sex: Male

DRUGS (3)
  1. HUMIRA [Suspect]
     Active Substance: ADALIMUMAB
     Route: 058
     Dates: start: 20201124, end: 20201124
  2. HUMIRA [Suspect]
     Active Substance: ADALIMUMAB
     Indication: COLITIS ULCERATIVE
     Route: 058
     Dates: start: 20201110, end: 20201110
  3. HUMIRA [Suspect]
     Active Substance: ADALIMUMAB
     Indication: COLITIS ULCERATIVE
     Route: 058
     Dates: start: 2020, end: 20201222

REACTIONS (18)
  - Chills [Unknown]
  - Fatigue [Unknown]
  - Abdominal pain [Unknown]
  - Pyrexia [Unknown]
  - White blood cell count decreased [Unknown]
  - Oral herpes [Unknown]
  - Weight increased [Unknown]
  - Abdominal distension [Recovering/Resolving]
  - Infection [Unknown]
  - Sinus pain [Unknown]
  - Insomnia [Unknown]
  - Headache [Unknown]
  - Constipation [Unknown]
  - Arthritis [Unknown]
  - Bone pain [Unknown]
  - Tremor [Unknown]
  - Nasal herpes [Unknown]
  - Fatigue [Unknown]

NARRATIVE: CASE EVENT DATE: 2020
